FAERS Safety Report 4941799-5 (Version None)
Quarter: 2006Q1

REPORT INFORMATION
  Report Type: 
  Country: None (occurrence: None)
  Receive Date: 20060308
  Receipt Date: 20060222
  Transmission Date: 20060701
  Serious: Yes (Hospitalization)
  Sender: FDA-Public Use
  Company Number: 2006-0009226

PATIENT
  Age: 49 Year
  Sex: Male

DRUGS (7)
  1. TRUVADA [Suspect]
     Indication: HIV INFECTION
     Dates: start: 20060105, end: 20060201
  2. SUSTIVA [Concomitant]
  3. ISONIAZID [Concomitant]
  4. RIFAMPICIN [Concomitant]
  5. PYRAZINAMIDE [Concomitant]
  6. BACTRIM [Concomitant]
  7. AZITHROMYCIN [Concomitant]

REACTIONS (3)
  - DIALYSIS [None]
  - METABOLIC ACIDOSIS [None]
  - RENAL FAILURE [None]
